FAERS Safety Report 16828537 (Version 1)
Quarter: 2019Q3

REPORT INFORMATION
  Report Type: Spontaneous
  Country: US (occurrence: US)
  Receive Date: 20190919
  Receipt Date: 20190919
  Transmission Date: 20191005
  Serious: Yes (Other)
  Sender: FDA-Public Use
  Company Number: US-AMERICAN REGENT INC-2019002047

PATIENT
  Age: 43 Year
  Sex: Female

DRUGS (1)
  1. INJECTAFER [Suspect]
     Active Substance: FERRIC CARBOXYMALTOSE
     Indication: PRODUCT USED FOR UNKNOWN INDICATION
     Dosage: UNK
     Route: 042
     Dates: start: 20190916, end: 20190916

REACTIONS (3)
  - Blood pressure decreased [Unknown]
  - Feeling hot [Unknown]
  - Discomfort [Unknown]

NARRATIVE: CASE EVENT DATE: 20190916
